FAERS Safety Report 20997298 (Version 1)
Quarter: 2022Q2

REPORT INFORMATION
  Report Type: Spontaneous
  Country: AU (occurrence: None)
  Receive Date: 20220623
  Receipt Date: 20220623
  Transmission Date: 20220721
  Serious: Yes (Hospitalization)
  Sender: FDA-Public Use
  Company Number: AU-Unichem Pharmaceuticals (USA) Inc-UCM202206-000565

PATIENT
  Age: 86 Year
  Sex: Female

DRUGS (7)
  1. CLONIDINE HYDROCHLORIDE [Suspect]
     Active Substance: CLONIDINE HYDROCHLORIDE
     Indication: Erythromelalgia
     Dosage: UNKNOWN
     Route: 061
  2. KETAMINE [Suspect]
     Active Substance: KETAMINE
     Indication: Erythromelalgia
     Dosage: UNKNOWN
     Route: 061
  3. AMITRIPTYLINE [Suspect]
     Active Substance: AMITRIPTYLINE
     Indication: Erythromelalgia
     Dosage: UNKNOWN
     Route: 061
  4. GABAPENTIN [Suspect]
     Active Substance: GABAPENTIN
     Indication: Erythromelalgia
     Dosage: UNKNOWN
     Route: 061
  5. TAPENTADOL [Concomitant]
     Active Substance: TAPENTADOL
     Indication: Erythromelalgia
     Dosage: UNKNOWN
  6. CODEINE [Concomitant]
     Active Substance: CODEINE
     Indication: Erythromelalgia
     Dosage: UNKNOWN
  7. OXYCODONE [Concomitant]
     Active Substance: OXYCODONE
     Indication: Erythromelalgia
     Dosage: UNKNOWN

REACTIONS (12)
  - Joint dislocation [Unknown]
  - Fall [Unknown]
  - Bradycardia [Recovering/Resolving]
  - Hypotension [Unknown]
  - Somnolence [Unknown]
  - Atrioventricular block first degree [Unknown]
  - Dry mouth [Unknown]
  - Dizziness [Unknown]
  - Hypothermia [Unknown]
  - Miosis [Unknown]
  - Toxicity to various agents [Unknown]
  - Product use in unapproved indication [Unknown]
